FAERS Safety Report 18654152 (Version 1)
Quarter: 2020Q4

REPORT INFORMATION
  Report Type: Spontaneous
  Country: CN (occurrence: CN)
  Receive Date: 20201223
  Receipt Date: 20201223
  Transmission Date: 20210114
  Serious: Yes (Disabling)
  Sender: FDA-Public Use
  Company Number: CN-ROCHE-2733186

PATIENT
  Age: 70 Year
  Weight: 78 kg

DRUGS (9)
  1. PERJETA [Suspect]
     Active Substance: PERTUZUMAB
     Route: 041
     Dates: start: 20201025, end: 20201025
  2. HERCEPTIN [Suspect]
     Active Substance: TRASTUZUMAB
     Route: 041
     Dates: start: 20201003, end: 20201007
  3. HERCEPTIN [Suspect]
     Active Substance: TRASTUZUMAB
     Indication: BREAST CANCER
     Route: 041
     Dates: start: 20200906, end: 20200915
  4. PERJETA [Suspect]
     Active Substance: PERTUZUMAB
     Indication: BREAST CANCER
     Route: 041
     Dates: start: 20200906, end: 20200915
  5. DOCETAXEL. [Suspect]
     Active Substance: DOCETAXEL
     Indication: BREAST CANCER
     Route: 041
     Dates: start: 20200906, end: 20200915
  6. DOCETAXEL. [Suspect]
     Active Substance: DOCETAXEL
     Route: 041
     Dates: start: 20201003, end: 20201007
  7. DOCETAXEL. [Suspect]
     Active Substance: DOCETAXEL
     Route: 041
     Dates: start: 20201026, end: 20201026
  8. PERJETA [Suspect]
     Active Substance: PERTUZUMAB
     Route: 041
     Dates: start: 20201003, end: 20201007
  9. HERCEPTIN [Suspect]
     Active Substance: TRASTUZUMAB
     Route: 041
     Dates: start: 20201025, end: 20201025

REACTIONS (2)
  - Myelosuppression [Recovered/Resolved with Sequelae]
  - Gastrointestinal disorder [Unknown]

NARRATIVE: CASE EVENT DATE: 202010
